FAERS Safety Report 10495808 (Version 2)
Quarter: 2014Q4

REPORT INFORMATION
  Report Type: Spontaneous
  Country: GT (occurrence: DO)
  Receive Date: 20141003
  Receipt Date: 20141010
  Transmission Date: 20150528
  Serious: Yes (Hospitalization)
  Sender: FDA-Public Use
  Company Number: GT-BAYER-2014-143754

PATIENT
  Age: 35 Year
  Sex: Female

DRUGS (1)
  1. YAZ [Suspect]
     Active Substance: DROSPIRENONE\ETHINYL ESTRADIOL
     Indication: CONTRACEPTION
     Dosage: UNK
     Route: 048
     Dates: start: 201308, end: 201408

REACTIONS (9)
  - Burns first degree [None]
  - Solar lentigo [None]
  - Erythema nodosum [Recovering/Resolving]
  - Rash erythematous [Recovering/Resolving]
  - Rash macular [None]
  - Photosensitivity reaction [None]
  - Rash vesicular [None]
  - Rash erythematous [None]
  - Sunburn [Recovering/Resolving]

NARRATIVE: CASE EVENT DATE: 201311
